FAERS Safety Report 18500266 (Version 1)
Quarter: 2020Q4

REPORT INFORMATION
  Report Type: Spontaneous
  Country: US (occurrence: US)
  Receive Date: 20201113
  Receipt Date: 20201113
  Transmission Date: 20210114
  Serious: No
  Sender: FDA-Public Use
  Company Number: US-009507513-2003USA007738

PATIENT
  Sex: Female

DRUGS (3)
  1. ZOSTAVAX [Suspect]
     Active Substance: VARICELLA-ZOSTER VIRUS STRAIN OKA/MERCK LIVE ANTIGEN
     Indication: PROPHYLAXIS
     Route: 065
     Dates: start: 20170424
  2. PRINIVIL [Suspect]
     Active Substance: LISINOPRIL
     Indication: HYPERTENSION
     Dosage: UNK
     Route: 048
     Dates: end: 20180604
  3. ZOSTAVAX [Suspect]
     Active Substance: VARICELLA-ZOSTER VIRUS STRAIN OKA/MERCK LIVE ANTIGEN
     Indication: ROUTINE HEALTH MAINTENANCE

REACTIONS (12)
  - Lymphocyte percentage abnormal [Unknown]
  - Hypersensitivity [Unknown]
  - Lentigo [Unknown]
  - Blood mercury abnormal [Recovered/Resolved]
  - Chills [Unknown]
  - Haemangioma of skin [Unknown]
  - Drug eruption [Unknown]
  - Rash vesicular [Unknown]
  - Pyrexia [Unknown]
  - Hypertension [Unknown]
  - Infusion site pain [Unknown]
  - Injection site mass [Unknown]

NARRATIVE: CASE EVENT DATE: 20170320
